FAERS Safety Report 9145601 (Version 2)
Quarter: 2013Q2

REPORT INFORMATION
  Report Type: Spontaneous
  Country: US (occurrence: US)
  Receive Date: 20130307
  Receipt Date: 20130509
  Transmission Date: 20140414
  Serious: Yes (Other)
  Sender: FDA-Public Use
  Company Number: US-JNJFOC-20130215822

PATIENT
  Age: 51 Year
  Sex: Female
  Weight: 55.34 kg

DRUGS (5)
  1. TOPAMAX [Suspect]
     Indication: NEUROPATHY PERIPHERAL
     Dosage: INITIATED IN DEC-2005 OR JAN-2006
     Route: 048
  2. NUCYNTA [Concomitant]
     Indication: PAIN
     Route: 065
     Dates: start: 2010
  3. OXYCONTIN [Concomitant]
     Indication: PAIN
     Route: 065
     Dates: start: 2009
  4. NUVIGIL [Concomitant]
     Indication: PAIN
     Route: 065
     Dates: start: 2009
  5. PERCOCET [Concomitant]
     Indication: PAIN
     Route: 065
     Dates: start: 2006, end: 2008

REACTIONS (1)
  - Tooth disorder [Not Recovered/Not Resolved]
